FAERS Safety Report 8778305 (Version 2)
Quarter: 2012Q4

REPORT INFORMATION
  Report Type: 
  Country: US (occurrence: US)
  Receive Date: 20120912
  Receipt Date: 20121004
  Transmission Date: 20130627
  Serious: Yes (Life-Threatening, Hospitalization)
  Sender: FDA-Public Use
  Company Number: US-B.I. PHARMACEUTICALS,INC./RIDGEFIELD-2012-BP-22261BP

PATIENT
  Sex: Male
  Weight: 154.67 kg

DRUGS (3)
  1. PRADAXA [Suspect]
     Indication: ATRIAL FIBRILLATION
     Dosage: 300 mg
     Route: 048
     Dates: start: 201108, end: 201205
  2. LEVOTHYROXINE [Concomitant]
     Indication: HYPOTHYROIDISM
     Dosage: 300 mcg
     Route: 048
  3. EXFORGE [Concomitant]
     Indication: HYPERTENSION
     Route: 048

REACTIONS (1)
  - Atrial thrombosis [Recovered/Resolved]
